FAERS Safety Report 8822741 (Version 1)
Quarter: 2012Q4

REPORT INFORMATION
  Report Type: 
  Country: US (occurrence: US)
  Receive Date: 20121003
  Receipt Date: 20121003
  Transmission Date: 20130627
  Serious: No
  Sender: FDA-Public Use
  Company Number: US-VERTEX PHARMACEUTICAL INC.-2012-021108

PATIENT

DRUGS (5)
  1. VX-950 [Suspect]
     Indication: HEPATITIS C
     Dosage: 750 mg, tid
     Route: 048
     Dates: start: 20120328
  2. PEGASYS [Suspect]
     Indication: HEPATITIS C
     Dosage: 180 ?g, weekly
     Route: 058
     Dates: start: 20120328
  3. RIBAPAK [Suspect]
     Indication: HEPATITIS C
     Dosage: 800 mg, qd
     Route: 048
     Dates: start: 20120328
  4. METHOCARBAMOL [Concomitant]
     Dosage: 500 mg, tid
     Route: 048
  5. CALCIUM VITAMIN D [Concomitant]
     Dosage: UNK, qd
     Route: 048

REACTIONS (2)
  - Alopecia [Unknown]
  - Fatigue [Unknown]
